FAERS Safety Report 4989912-8 (Version None)
Quarter: 2006Q2

REPORT INFORMATION
  Report Type: 
  Country: None (occurrence: None)
  Receive Date: 20060425
  Receipt Date: 20060410
  Transmission Date: 20061013
  Serious: Yes (Other)
  Sender: FDA-Public Use
  Company Number: 601560

PATIENT
  Age: 1 Year
  Sex: Male
  Weight: 13 kg

DRUGS (2)
  1. ADVATE [Suspect]
     Indication: FACTOR VIII DEFICIENCY
     Dosage: 325 IU AS NEEDED IV
     Route: 042
     Dates: start: 20040305
  2. ADVATE [Suspect]
     Indication: HAEMORRHAGE
     Dosage: 325 IU AS NEEDED IV
     Route: 042
     Dates: start: 20040305

REACTIONS (4)
  - COAGULATION FACTOR VIII LEVEL DECREASED [None]
  - FACTOR VIII INHIBITION [None]
  - MALAISE [None]
  - WHITE BLOOD CELL COUNT INCREASED [None]
